FAERS Safety Report 18080696 (Version 1)
Quarter: 2020Q3

REPORT INFORMATION
  Report Type: Spontaneous
  Country: US (occurrence: US)
  Receive Date: 20200728
  Receipt Date: 20200728
  Transmission Date: 20201103
  Serious: No
  Sender: FDA-Public Use
  Company Number: US-GLENMARK PHARMACEUTICALS-2020GMK046547

PATIENT
  Sex: Female

DRUGS (1)
  1. MUPIROCIN OINTMENT USP, 2% [Suspect]
     Active Substance: MUPIROCIN
     Indication: SINUSITIS
     Dosage: UNK, ONE TIME USED
     Route: 045
     Dates: start: 2020, end: 2020

REACTIONS (3)
  - Product use in unapproved indication [Unknown]
  - Incorrect route of product administration [Unknown]
  - Nasal discomfort [Unknown]

NARRATIVE: CASE EVENT DATE: 2020
